FAERS Safety Report 18772001 (Version 1)
Quarter: 2021Q1

REPORT INFORMATION
  Report Type: Not Available
  Country: US (occurrence: US)
  Receive Date: 20210121
  Receipt Date: 20210121
  Transmission Date: 20210419
  Serious: Yes (Life-Threatening)
  Sender: FDA-Public Use
  Company Number: US-C B FLEET CO INC-202101-US-000126

PATIENT
  Age: 6 Year
  Sex: Male

DRUGS (1)
  1. PEDIA?LAX (DOCUSATE SODIUM) [Suspect]
     Active Substance: DOCUSATE SODIUM
     Indication: CONSTIPATION
     Dosage: 15ML
     Route: 048

REACTIONS (1)
  - Anaphylactic reaction [Recovered/Resolved]
